APPROVED DRUG PRODUCT: NOGENIC HC
Active Ingredient: HYDROCORTISONE
Strength: 1%
Dosage Form/Route: CREAM;TOPICAL
Application: A087427 | Product #001
Applicant: IVAX PHARMACEUTICALS INC
Approved: Apr 4, 1988 | RLD: No | RS: No | Type: DISCN